FAERS Safety Report 5910827-2 (Version None)
Quarter: 2008Q4

REPORT INFORMATION
  Report Type: 
  Country: None (occurrence: None)
  Receive Date: 20081006
  Receipt Date: 20081006
  Transmission Date: 20090506
  Serious: Yes (Other)
  Sender: FDA-Public Use
  Company Number: None

PATIENT
  Age: 7 Year
  Sex: Female
  Weight: 22.2263 kg

DRUGS (2)
  1. SINGULAIR [Suspect]
     Indication: ASTHMA
     Dosage: ONE TABLET DAILY PO
     Route: 048
     Dates: start: 20041010, end: 20080920
  2. SINGULAIR [Suspect]
     Indication: MULTIPLE ALLERGIES
     Dosage: ONE TABLET DAILY PO
     Route: 048
     Dates: start: 20041010, end: 20080920

REACTIONS (3)
  - ANGER [None]
  - DEPRESSION [None]
  - FRUSTRATION [None]
